FAERS Safety Report 9298966 (Version 1)
Quarter: 2013Q2

REPORT INFORMATION
  Report Type: Spontaneous
  Country: IT (occurrence: IT)
  Receive Date: 20130520
  Receipt Date: 20130522
  Transmission Date: 20140414
  Serious: Yes (Other)
  Sender: FDA-Public Use
  Company Number: IT-TEVA-404115ISR

PATIENT
  Age: 67 Year
  Sex: Male
  Weight: 70 kg

DRUGS (5)
  1. OXALIPLATINO TEVA 5 MG/ML CONCENTRADO PARA SOLUCI?N PARA PERFUSION [Suspect]
     Indication: BILIARY NEOPLASM
     Dosage: 243.1 MILLIGRAM DAILY;
     Route: 042
     Dates: start: 20130116, end: 20130116
  2. XELODA [Suspect]
     Indication: BILIARY NEOPLASM
     Dosage: 3740 MILLIGRAM DAILY;
     Route: 048
     Dates: start: 20130116, end: 20130116
  3. RANIDIL [Concomitant]
     Indication: BILIARY NEOPLASM
     Dosage: 100 MILLIGRAM DAILY;
     Route: 042
     Dates: start: 20130116, end: 20130116
  4. ONDANSETRONE HIKMA [Concomitant]
     Dosage: 8 MILLIGRAM DAILY;
     Route: 042
  5. SOLDESAM [Concomitant]
     Dosage: 8 MILLIGRAM DAILY;
     Route: 042

REACTIONS (8)
  - Abdominal pain [Recovering/Resolving]
  - Nausea [Recovering/Resolving]
  - Vomiting [Recovering/Resolving]
  - Dyspnoea [Recovering/Resolving]
  - Asthenia [Recovering/Resolving]
  - Formication [Recovering/Resolving]
  - Pain in jaw [Recovering/Resolving]
  - Dry skin [Recovering/Resolving]
